FAERS Safety Report 10430249 (Version 1)
Quarter: 2014Q3

REPORT INFORMATION
  Report Type: Spontaneous
  Country: FR (occurrence: FR)
  Receive Date: 20140904
  Receipt Date: 20140904
  Transmission Date: 20150326
  Serious: Yes (Hospitalization)
  Sender: FDA-Public Use
  Company Number: FR-009507513-1409FRA001267

PATIENT
  Age: 66 Year
  Sex: Male

DRUGS (19)
  1. CIPROFLOXACINE KABI [Concomitant]
     Active Substance: CIPROFLOXACIN
  2. IMIPENEM AND CILASTATIN [Concomitant]
     Active Substance: CILASTATIN SODIUM\IMIPENEM
     Dosage: UNK
     Dates: start: 20140727, end: 20140805
  3. ZECLAR [Concomitant]
     Active Substance: CLARITHROMYCIN
  4. DIFFU-K [Concomitant]
     Active Substance: POTASSIUM CHLORIDE
  5. ACTISKENAN [Concomitant]
     Active Substance: MORPHINE SULFATE
  6. ANSATIPINE [Concomitant]
     Active Substance: RIFABUTIN
     Dosage: UNK
     Dates: start: 20140723, end: 20140808
  7. GRANOCYTE [Concomitant]
     Active Substance: LENOGRASTIM
  8. ZELITREX [Concomitant]
     Active Substance: VALACYCLOVIR HYDROCHLORIDE
  9. TIORFAN [Concomitant]
     Active Substance: RACECADOTRIL
  10. CALCIDOSE [Concomitant]
     Active Substance: CALCIUM CARBONATE
  11. ATARAX [Concomitant]
     Active Substance: HYDROXYZINE\HYDROXYZINE HYDROCHLORIDE
  12. CANCIDAS [Suspect]
     Active Substance: CASPOFUNGIN ACETATE
     Indication: BRONCHOPULMONARY ASPERGILLOSIS
     Dosage: UNK
     Route: 042
     Dates: start: 20140704, end: 20140805
  13. WELLVONE [Concomitant]
     Active Substance: ATOVAQUONE
  14. ETHAMBUTOL [Concomitant]
     Active Substance: ETHAMBUTOL HYDROCHLORIDE
     Dosage: UNK
     Dates: start: 20140723
  15. SKENAN [Concomitant]
     Active Substance: MORPHINE SULFATE
  16. INEXIUM (ESOMEPRAZOLE MAGNESIUM) [Concomitant]
     Active Substance: ESOMEPRAZOLE MAGNESIUM
  17. AMBISOME [Concomitant]
     Active Substance: AMPHOTERICIN B
     Dosage: 340 MG, UNK
     Dates: end: 20140703
  18. DORIBAX [Concomitant]
     Active Substance: DORIPENEM
  19. LOVENOX [Concomitant]
     Active Substance: ENOXAPARIN SODIUM

REACTIONS (1)
  - Cholestasis [Recovering/Resolving]

NARRATIVE: CASE EVENT DATE: 201407
